FAERS Safety Report 7780874-7 (Version None)
Quarter: 2011Q3

REPORT INFORMATION
  Report Type: 
  Country: None (occurrence: None)
  Receive Date: 20110923
  Receipt Date: 20110908
  Transmission Date: 20111222
  Serious: Yes (Other)
  Sender: FDA-Public Use
  Company Number: 2011P1008789

PATIENT
  Age: 82 Year
  Sex: Female
  Weight: 99.7913 kg

DRUGS (3)
  1. WARFARIN SODIUM [Suspect]
     Indication: THROMBOSIS
     Dosage: 5 MG; T, TH, SAT; PO   2.5 MG; SUN, M, W, F; PO
     Route: 048
     Dates: start: 20081201
  2. WARFARIN SODIUM [Suspect]
     Indication: THROMBOSIS
     Dosage: 5 MG; T, TH, SAT; PO   2.5 MG; SUN, M, W, F; PO
     Route: 048
     Dates: start: 20081201
  3. ATENOLOL [Concomitant]

REACTIONS (5)
  - SYNOVIAL CYST [None]
  - DEEP VEIN THROMBOSIS [None]
  - VEIN DISORDER [None]
  - STASIS DERMATITIS [None]
  - FIBRIN D DIMER INCREASED [None]
